FAERS Safety Report 10447549 (Version 1)
Quarter: 2014Q3

REPORT INFORMATION
  Report Type: Spontaneous
  Country: US (occurrence: None)
  Receive Date: 20140910
  Receipt Date: 20140910
  Transmission Date: 20150326
  Serious: Yes (Hospitalization)
  Sender: FDA-Public Use
  Company Number: None

PATIENT
  Age: 70 Year
  Sex: Female
  Weight: 53.2 kg

DRUGS (2)
  1. CARBOPLATIN. [Suspect]
     Active Substance: CARBOPLATIN
     Dates: end: 20140812
  2. TAXOL [Suspect]
     Active Substance: PACLITAXEL
     Dates: end: 20140812

REACTIONS (11)
  - Nausea [None]
  - Oedema peripheral [None]
  - Fatigue [None]
  - Hepatic cyst [None]
  - Disease progression [None]
  - Deep vein thrombosis [None]
  - Hypokalaemia [None]
  - Dysuria [None]
  - Ascites [None]
  - Diarrhoea [None]
  - Dehydration [None]

NARRATIVE: CASE EVENT DATE: 20140828
